FAERS Safety Report 6744659-2 (Version None)
Quarter: 2010Q2

REPORT INFORMATION
  Report Type: 
  Country: None (occurrence: None)
  Receive Date: 20100527
  Receipt Date: 20100524
  Transmission Date: 20101027
  Serious: Yes (Other)
  Sender: FDA-Public Use
  Company Number: MY-WYE-H15306810

PATIENT
  Age: 30 Year
  Sex: Male

DRUGS (1)
  1. TAZOCIN [Suspect]
     Indication: POSTOPERATIVE WOUND INFECTION
     Dosage: ONE DOSE
     Route: 042
     Dates: start: 20091122

REACTIONS (5)
  - EYE DISCHARGE [None]
  - HYPERHIDROSIS [None]
  - LARYNGOSPASM [None]
  - NASAL CONGESTION [None]
  - RASH [None]
